FAERS Safety Report 17461360 (Version 2)
Quarter: 2020Q2

REPORT INFORMATION
  Report Type: Spontaneous
  Country: RO (occurrence: RO)
  Receive Date: 20200226
  Receipt Date: 20200414
  Transmission Date: 20200713
  Serious: Yes (Other)
  Sender: FDA-Public Use
  Company Number: RO-CELLTRION INC.-2020RO019488

PATIENT

DRUGS (7)
  1. INFLIXIMAB (UNKNOWN) [Suspect]
     Active Substance: INFLIXIMAB
     Indication: ANKYLOSING SPONDYLITIS
     Dosage: UNK
     Route: 042
  2. ADALIMUMAB [Suspect]
     Active Substance: ADALIMUMAB
     Indication: ANKYLOSING SPONDYLITIS
     Dosage: UNK
     Route: 065
  3. ETANERCEPT [Suspect]
     Active Substance: ETANERCEPT
     Indication: HYPERGAMMAGLOBULINAEMIA BENIGN MONOCLONAL
     Dosage: UNK
     Route: 065
  4. INFLIXIMAB (UNKNOWN) [Suspect]
     Active Substance: INFLIXIMAB
     Indication: HYPERGAMMAGLOBULINAEMIA BENIGN MONOCLONAL
     Dosage: THE RESPONSE WAS GOOD, BUT SUSTAINED ONLY FOR 9 MONTHS
     Route: 042
  5. SULPHASALAZINE [Concomitant]
     Active Substance: SULFASALAZINE
     Indication: ANKYLOSING SPONDYLITIS
     Dosage: 2 GRAM, DAILY
     Route: 065
  6. SECUKINUMAB. [Suspect]
     Active Substance: SECUKINUMAB
     Indication: ANKYLOSING SPONDYLITIS
     Dosage: UNK
     Route: 065
  7. ETANERCEPT [Suspect]
     Active Substance: ETANERCEPT
     Indication: ANKYLOSING SPONDYLITIS

REACTIONS (7)
  - C-reactive protein increased [Recovering/Resolving]
  - Basal cell carcinoma [Recovered/Resolved]
  - Drug ineffective [Unknown]
  - Off label use [Unknown]
  - Uveitis [Recovered/Resolved]
  - Red blood cell sedimentation rate increased [Recovering/Resolving]
  - Ankylosing spondylitis [Recovering/Resolving]
